FAERS Safety Report 17583970 (Version 4)
Quarter: 2020Q4

REPORT INFORMATION
  Report Type: Other
  Country: US (occurrence: US)
  Receive Date: 20200326
  Receipt Date: 20201210
  Transmission Date: 20210113
  Serious: Yes (Other)
  Sender: FDA-Public Use
  Company Number: US-ROCHE-2466312

PATIENT
  Sex: Female

DRUGS (8)
  1. PROMETHAZINE [Concomitant]
     Active Substance: PROMETHAZINE HYDROCHLORIDE
  2. OFEV [Concomitant]
     Active Substance: NINTEDANIB
     Dosage: TAKE 1 CAPSULE BY ORAL ROUTE 2 TIMES EVERY DAY
     Route: 048
  3. ESBRIET [Suspect]
     Active Substance: PIRFENIDONE
     Indication: PULMONARY FIBROSIS
     Dosage: TAKE 2 TABLET(S) BY MOUTH 3 TIMES A DAY
     Route: 048
  4. ESBRIET [Suspect]
     Active Substance: PIRFENIDONE
     Indication: IDIOPATHIC PULMONARY FIBROSIS
     Dosage: TAKE 1 TABLET BY MOUTH 3 TIMES A DAY
     Route: 048
  5. ESBRIET [Suspect]
     Active Substance: PIRFENIDONE
     Dosage: THREE TABLETS, THREE TIMES A DAY
     Route: 048
  6. ESBRIET [Suspect]
     Active Substance: PIRFENIDONE
     Route: 048
  7. OMEPRAZOLE. [Concomitant]
     Active Substance: OMEPRAZOLE
  8. ASPIRIN. [Concomitant]
     Active Substance: ASPIRIN

REACTIONS (8)
  - Somnolence [Not Recovered/Not Resolved]
  - Circumstance or information capable of leading to medication error [Unknown]
  - Nausea [Recovered/Resolved]
  - Urinary tract infection [Unknown]
  - Herpes zoster [Unknown]
  - Back pain [Not Recovered/Not Resolved]
  - Secretion discharge [Unknown]
  - Cough [Not Recovered/Not Resolved]
